FAERS Safety Report 23570140 (Version 1)
Quarter: 2024Q1

REPORT INFORMATION
  Report Type: Spontaneous
  Country: US (occurrence: None)
  Receive Date: 20240226
  Receipt Date: 20240226
  Transmission Date: 20240409
  Serious: Yes (Death)
  Sender: FDA-Public Use
  Company Number: None

PATIENT
  Age: 85 Year
  Sex: Male

DRUGS (1)
  1. LOKELMA [Suspect]
     Active Substance: SODIUM ZIRCONIUM CYCLOSILICATE
     Indication: Chronic lymphocytic leukaemia refractory
     Dosage: FREQUENCY : DAILY;?
     Route: 048
     Dates: start: 20240116, end: 20240123

REACTIONS (1)
  - Death [None]

NARRATIVE: CASE EVENT DATE: 20240127
